FAERS Safety Report 9251196 (Version 1)
Quarter: 2013Q1

REPORT INFORMATION
  Report Type: Spontaneous
  Country: US (occurrence: None)
  Receive Date: 20130305
  Receipt Date: 20130305
  Transmission Date: 20140127
  Serious: Yes (Hospitalization)
  Sender: FDA-Public Use
  Company Number: 163-21880-12071944

PATIENT
  Age: 71 Year
  Sex: Female
  Weight: 72.58 kg

DRUGS (9)
  1. REVLIMID [Suspect]
     Indication: PLASMA CELL MYELOMA
     Dosage: 10 MG, 21 IN 21 D
     Route: 048
     Dates: start: 201105, end: 201110
  2. AMIODARONE (AMIODARONE) [Suspect]
  3. ASPIRIN (ACETYLSALICYLIC ACID) [Suspect]
  4. BALSALAZIDE [Suspect]
  5. DILTIAZEM [Suspect]
  6. LISINOPRIL (LISINOPRIL) [Suspect]
  7. TYLENOL (PARACETAMOL) [Suspect]
  8. WARFARIN (WARFARIN) [Suspect]
  9. ZOFRAN [Suspect]

REACTIONS (5)
  - Pneumonia [None]
  - Rash pruritic [None]
  - Oropharyngeal pain [None]
  - Dysphonia [None]
  - Nausea [None]
